FAERS Safety Report 15018573 (Version 1)
Quarter: 2018Q2

REPORT INFORMATION
  Report Type: Report from Study
  Country: US (occurrence: US)
  Receive Date: 20180615
  Receipt Date: 20180615
  Transmission Date: 20180711
  Serious: Yes (Other)
  Sender: FDA-Public Use
  Company Number: US-ALEXION PHARMACEUTICALS INC.-A201807470

PATIENT
  Sex: Male

DRUGS (1)
  1. STRENSIQ [Suspect]
     Active Substance: ASFOTASE ALFA
     Indication: PRODUCT USED FOR UNKNOWN INDICATION
     Dosage: UNK
     Route: 065
     Dates: end: 201709

REACTIONS (7)
  - Walking aid user [Unknown]
  - Seizure [Unknown]
  - Balance disorder [Unknown]
  - Skull malformation [Unknown]
  - Oesophageal achalasia [Unknown]
  - Bone pain [Unknown]
  - Skeletal injury [Unknown]
